FAERS Safety Report 9250721 (Version 1)
Quarter: 2013Q1

REPORT INFORMATION
  Report Type: Spontaneous
  Country: US (occurrence: None)
  Receive Date: 20130305
  Receipt Date: 20130305
  Transmission Date: 20140127
  Serious: Yes (Life-Threatening, Other)
  Sender: FDA-Public Use
  Company Number: 163-21880-12063126

PATIENT
  Age: 54 Year
  Sex: Male

DRUGS (3)
  1. REVLIMID (LENALIDOMIDE) (25 MILLIGRAM, CAPSULES) [Suspect]
     Indication: PLASMA CELL MYELOMA
     Dosage: 18.75 MG, 21 IN 28 D, PO
     Route: 048
     Dates: start: 201202
  2. DEXAMETHASONE (DEXAMETHASONE) (UNKNOWN) [Concomitant]
     Dosage: 10 MG, 1 IN 1 WK, PO
     Route: 048
  3. ASA (ACETYLSALICYLIC ACID) (TABLETS) [Concomitant]
     Dosage: 325 MG, 1 IN 1 D, PO
     Route: 048

REACTIONS (1)
  - Deep vein thrombosis [None]
